FAERS Safety Report 7581816-X (Version None)
Quarter: 2011Q2

REPORT INFORMATION
  Report Type: 
  Country: None (occurrence: None)
  Receive Date: 20110629
  Receipt Date: 20110623
  Transmission Date: 20111010
  Serious: Yes (Death, Other)
  Sender: FDA-Public Use
  Company Number: CN-CELGENEUS-035-20785-11063159

PATIENT

DRUGS (7)
  1. BORTEZOMIB [Concomitant]
     Indication: MULTIPLE MYELOMA
     Dosage: 1.1 MILLIGRAM/SQ. METER
     Route: 051
  2. VINDESINE [Concomitant]
     Indication: MULTIPLE MYELOMA
     Route: 065
  3. MELPHALAN HYDROCHLORIDE [Concomitant]
     Indication: MULTIPLE MYELOMA
     Route: 065
  4. DOXORUBICIN HCL [Concomitant]
     Indication: MULTIPLE MYELOMA
     Route: 065
  5. DEXAMETHASONE [Concomitant]
     Indication: MULTIPLE MYELOMA
     Route: 065
  6. THALIDOMIDE [Suspect]
     Indication: MULTIPLE MYELOMA
     Dosage: 50MG TO 150MG
     Route: 048
  7. PREDNISONE [Concomitant]
     Indication: MULTIPLE MYELOMA
     Route: 065

REACTIONS (12)
  - DEEP VEIN THROMBOSIS [None]
  - PERIPHERAL SENSORY NEUROPATHY [None]
  - NAUSEA [None]
  - FATIGUE [None]
  - LUNG INFECTION [None]
  - OESOPHAGEAL CARCINOMA [None]
  - MULTIPLE MYELOMA [None]
  - THROMBOCYTOPENIA [None]
  - NEUTROPENIA [None]
  - CONSTIPATION [None]
  - VOMITING [None]
  - HERPES ZOSTER [None]
